FAERS Safety Report 13945795 (Version 2)
Quarter: 2017Q4

REPORT INFORMATION
  Report Type: Report from Study
  Country: DE (occurrence: DE)
  Receive Date: 20170907
  Receipt Date: 20171218
  Transmission Date: 20180320
  Serious: Yes (Other)
  Sender: FDA-Public Use
  Company Number: DE-ROCHE-1986258

PATIENT

DRUGS (5)
  1. ASPIRIN. [Suspect]
     Active Substance: ASPIRIN
     Indication: ACUTE MYOCARDIAL INFARCTION
     Route: 065
  2. ALTEPLASE. [Suspect]
     Active Substance: ALTEPLASE
     Indication: ACUTE MYOCARDIAL INFARCTION
     Route: 040
  3. HEPARIN [Suspect]
     Active Substance: HEPARIN SODIUM
     Indication: ACUTE MYOCARDIAL INFARCTION
     Dosage: 5000 UNITS
     Route: 040
  4. ALTEPLASE. [Suspect]
     Active Substance: ALTEPLASE
     Dosage: OVER 60 MIN
     Route: 042
  5. ALTEPLASE. [Suspect]
     Active Substance: ALTEPLASE
     Dosage: OVER 30 MIN
     Route: 042

REACTIONS (7)
  - Myocardial ischaemia [Unknown]
  - Cardiogenic shock [Unknown]
  - Cerebral ischaemia [Unknown]
  - Myocardial infarction [Unknown]
  - Cerebral haemorrhage [Unknown]
  - Retroperitoneal haematoma [Unknown]
  - Puncture site haemorrhage [Unknown]
